FAERS Safety Report 7789865-3 (Version None)
Quarter: 2011Q3

REPORT INFORMATION
  Report Type: 
  Country: None (occurrence: None)
  Receive Date: 20110930
  Receipt Date: 20110419
  Transmission Date: 20111222
  Serious: Yes (Hospitalization)
  Sender: FDA-Public Use
  Company Number: US-ASTRAZENECA-2010SE42458

PATIENT
  Age: 26970 Day
  Sex: Female

DRUGS (1)
  1. ARIMIDEX [Suspect]
     Route: 048

REACTIONS (8)
  - BLOOD CHOLESTEROL INCREASED [None]
  - CEREBROVASCULAR ACCIDENT [None]
  - BACK PAIN [None]
  - SCIATICA [None]
  - EYE DISORDER [None]
  - ASTHENIA [None]
  - CATARACT [None]
  - DRUG DOSE OMISSION [None]
